FAERS Safety Report 10936293 (Version 1)
Quarter: 2015Q1

REPORT INFORMATION
  Report Type: Spontaneous
  Country: US (occurrence: None)
  Receive Date: 20150319
  Receipt Date: 20150319
  Transmission Date: 20150721
  Serious: Yes (Life-Threatening, Disabling, Other)
  Sender: FDA-Public Use
  Company Number: None

PATIENT
  Age: 60 Year
  Sex: Female
  Weight: 49.9 kg

DRUGS (3)
  1. XANAX [Concomitant]
     Active Substance: ALPRAZOLAM
  2. BUSPAR [Suspect]
     Active Substance: BUSPIRONE HYDROCHLORIDE
     Indication: ANXIETY
     Dates: start: 20150105, end: 20150210
  3. BUSPAR [Suspect]
     Active Substance: BUSPIRONE HYDROCHLORIDE
     Indication: POST-TRAUMATIC STRESS DISORDER
     Dates: start: 20150105, end: 20150210

REACTIONS (29)
  - Swelling face [None]
  - Dizziness [None]
  - Anxiety [None]
  - Dyskinesia [None]
  - Dyspnoea [None]
  - Urticaria [None]
  - Swelling [None]
  - Tremor [None]
  - Pruritus [None]
  - Swollen tongue [None]
  - Erythema [None]
  - Dysgeusia [None]
  - Drug administration error [None]
  - Pharyngeal oedema [None]
  - Lymphadenopathy [None]
  - Tardive dyskinesia [None]
  - Vision blurred [None]
  - Unevaluable event [None]
  - Musculoskeletal stiffness [None]
  - Heart rate irregular [None]
  - Nausea [None]
  - Movement disorder [None]
  - Hyperhidrosis [None]
  - Hallucination [None]
  - Confusional state [None]
  - Contusion [None]
  - Heart rate increased [None]
  - Stomatitis [None]
  - Chest pain [None]

NARRATIVE: CASE EVENT DATE: 20150210
